FAERS Safety Report 24046761 (Version 5)
Quarter: 2025Q1

REPORT INFORMATION
  Report Type: Spontaneous
  Country: DE (occurrence: DE)
  Receive Date: 20240703
  Receipt Date: 20250304
  Transmission Date: 20250409
  Serious: Yes (Other)
  Sender: NOVARTIS
  Company Number: DE-002147023-NVSC2024DE136266

PATIENT
  Sex: Female
  Weight: 65 kg

DRUGS (8)
  1. KISQALI [Suspect]
     Active Substance: RIBOCICLIB
     Indication: Breast cancer
     Dosage: 600 MG, QD
     Route: 048
     Dates: start: 20240403, end: 2024
  2. KISQALI [Suspect]
     Active Substance: RIBOCICLIB
     Indication: Metastasis
     Route: 065
     Dates: start: 2024
  3. KISQALI [Suspect]
     Active Substance: RIBOCICLIB
     Route: 048
     Dates: end: 2024
  4. KISQALI [Suspect]
     Active Substance: RIBOCICLIB
     Route: 065
  5. ATORVASTATIN [Concomitant]
     Active Substance: ATORVASTATIN
     Indication: Hypercholesterolaemia
     Route: 048
     Dates: start: 2020
  6. OPIPRAMOL [Concomitant]
     Active Substance: OPIPRAMOL
     Indication: Antidepressant therapy
     Route: 048
     Dates: start: 202403
  7. LEVOTHYROXINE SODIUM [Concomitant]
     Active Substance: LEVOTHYROXINE SODIUM
     Indication: Hypothyroidism
     Route: 048
     Dates: start: 201801
  8. DENOSUMAB [Concomitant]
     Active Substance: DENOSUMAB
     Route: 065

REACTIONS (8)
  - Metastases to bone [Recovering/Resolving]
  - Leukopenia [Recovering/Resolving]
  - Carcinoembryonic antigen increased [Unknown]
  - Metastases to liver [Unknown]
  - Pruritus [Recovering/Resolving]
  - Carbohydrate antigen 15-3 increased [Unknown]
  - Transaminases increased [Recovered/Resolved]
  - Liver function test increased [Unknown]

NARRATIVE: CASE EVENT DATE: 20240403
